FAERS Safety Report 8255439-3 (Version None)
Quarter: 2012Q2

REPORT INFORMATION
  Report Type: 
  Country: None (occurrence: None)
  Receive Date: 20120403
  Receipt Date: 20120329
  Transmission Date: 20120825
  Serious: Yes (Death, Hospitalization, Other)
  Sender: FDA-Public Use
  Company Number: JP-SANOFI-AVENTIS-2012SA015713

PATIENT
  Age: 78 Year
  Sex: Male
  Weight: 49.1 kg

DRUGS (6)
  1. TAXOTERE [Suspect]
     Indication: PROSTATE CANCER
     Route: 041
     Dates: start: 20120217, end: 20120217
  2. LANSOPRAZOLE [Concomitant]
     Route: 048
     Dates: start: 20120217, end: 20120304
  3. DECADRON [Concomitant]
     Indication: PREMEDICATION
     Route: 048
     Dates: start: 20120217, end: 20120304
  4. ZOLADEX [Concomitant]
  5. TAXOTERE [Suspect]
     Dosage: DOCETAXE- 60MG/BODYDURATION 1 DAY/2 W
     Route: 041
     Dates: start: 20120302, end: 20120302
  6. PREDNISOLONE [Concomitant]
     Dosage: DOSAGE:1 T
     Dates: start: 20090313, end: 20120304

REACTIONS (12)
  - GASTROINTESTINAL DISORDER [None]
  - SEPTIC SHOCK [None]
  - RENAL IMPAIRMENT [None]
  - NAUSEA [None]
  - SHOCK HAEMORRHAGIC [None]
  - HAEMATEMESIS [None]
  - DECREASED APPETITE [None]
  - GENERAL PHYSICAL HEALTH DETERIORATION [None]
  - DEPRESSED LEVEL OF CONSCIOUSNESS [None]
  - BLOOD PRESSURE DECREASED [None]
  - WHITE BLOOD CELL COUNT DECREASED [None]
  - PYREXIA [None]
